FAERS Safety Report 11682614 (Version 1)
Quarter: 2015Q4

REPORT INFORMATION
  Report Type: Spontaneous
  Country: US (occurrence: None)
  Receive Date: 20151028
  Receipt Date: 20151028
  Transmission Date: 20160304
  Serious: Yes (Life-Threatening, Hospitalization)
  Sender: FDA-Public Use
  Company Number: None

PATIENT
  Age: 62 Year
  Sex: Female
  Weight: 84.9 kg

DRUGS (15)
  1. HALOPERIDOL. [Suspect]
     Active Substance: HALOPERIDOL
     Indication: HALLUCINATION
     Route: 042
     Dates: start: 20150119, end: 20150119
  2. DILTIAZEM [Concomitant]
     Active Substance: DILTIAZEM
  3. MEGESTROL [Concomitant]
     Active Substance: MEGESTROL
  4. PANTOPRAZOLE [Concomitant]
     Active Substance: PANTOPRAZOLE SODIUM
  5. INSULIN [Concomitant]
     Active Substance: INSULIN NOS
  6. POTASSIUM CHLORIDE. [Concomitant]
     Active Substance: POTASSIUM CHLORIDE
  7. HALOPERIDOL. [Suspect]
     Active Substance: HALOPERIDOL
     Indication: DELIRIUM
     Route: 042
     Dates: start: 20150119, end: 20150119
  8. CYANOCOBALAMIN. [Concomitant]
     Active Substance: CYANOCOBALAMIN
  9. LEVOFLOXACIN. [Concomitant]
     Active Substance: LEVOFLOXACIN
  10. K-DUR [Concomitant]
     Active Substance: POTASSIUM CHLORIDE
  11. ATENOLOL. [Concomitant]
     Active Substance: ATENOLOL
  12. HALOPERIDOL. [Concomitant]
     Active Substance: HALOPERIDOL
  13. ERTAPENEM [Concomitant]
     Active Substance: ERTAPENEM
  14. LATUDA [Concomitant]
     Active Substance: LURASIDONE HYDROCHLORIDE
  15. ENOXAPARIN [Concomitant]
     Active Substance: ENOXAPARIN

REACTIONS (2)
  - Supraventricular tachycardia [None]
  - No therapeutic response [None]

NARRATIVE: CASE EVENT DATE: 20150119
